FAERS Safety Report 6987289-X (Version None)
Quarter: 2010Q3

REPORT INFORMATION
  Report Type: 
  Country: None (occurrence: None)
  Receive Date: 20100916
  Receipt Date: 20100908
  Transmission Date: 20110219
  Serious: Yes (Other)
  Sender: FDA-Public Use
  Company Number: DE-NAPPMUNDI-DEU-2010-0006338

PATIENT
  Age: 26 Year
  Sex: Male
  Weight: 113 kg

DRUGS (2)
  1. MORPHINE SULFATE [Suspect]
     Indication: PAIN
     Dosage: UNK
     Route: 048
  2. FENTANYL CITRATE [Suspect]
     Indication: PAIN
     Dosage: 100 UG, Q72H

REACTIONS (2)
  - APNOEA [None]
  - SOMNOLENCE [None]
